FAERS Safety Report 7766202-1 (Version None)
Quarter: 2011Q3

REPORT INFORMATION
  Report Type: 
  Country: None (occurrence: None)
  Receive Date: 20110921
  Receipt Date: 20110912
  Transmission Date: 20111222
  Serious: Yes (Hospitalization, Other)
  Sender: FDA-Public Use
  Company Number: BR-ASTRAZENECA-2011SE44341

PATIENT
  Age: 80 Year
  Sex: Female

DRUGS (8)
  1. NEXIUM [Concomitant]
     Route: 048
  2. SYMBICORT [Suspect]
     Dosage: 160/4.5 MCG AS REQUIRED
     Route: 055
     Dates: end: 20110721
  3. SYMBICORT [Suspect]
     Dosage: 160/4.5 MCG AS REQUIRED
     Route: 055
     Dates: end: 20110721
  4. SYMBICORT [Suspect]
     Indication: ASTHMA
     Dosage: 160/4.5 MCG TWO TIMES A DAY
     Route: 055
     Dates: end: 20110721
  5. SYMBICORT [Suspect]
     Indication: CHRONIC OBSTRUCTIVE PULMONARY DISEASE
     Dosage: 160/4.5 MCG TWO TIMES A DAY
     Route: 055
     Dates: end: 20110721
  6. SYMBICORT [Suspect]
     Indication: BRONCHIECTASIS
     Dosage: 160/4.5 MCG TWO TIMES A DAY
     Route: 055
     Dates: end: 20110721
  7. SYMBICORT [Suspect]
     Dosage: 160/4.5 MCG AS REQUIRED
     Route: 055
     Dates: end: 20110721
  8. PULMICORT [Suspect]
     Indication: OBSTRUCTIVE AIRWAYS DISORDER
     Dosage: 0.25 MG/ML
     Route: 055

REACTIONS (9)
  - TRACHEAL INJURY [None]
  - NASAL DISCOMFORT [None]
  - UPPER RESPIRATORY TRACT IRRITATION [None]
  - DYSPHAGIA [None]
  - PAIN [None]
  - ORAL DISCOMFORT [None]
  - DYSPHONIA [None]
  - NASOPHARYNGITIS [None]
  - OFF LABEL USE [None]
